FAERS Safety Report 7823617-0 (Version None)
Quarter: 2011Q4

REPORT INFORMATION
  Report Type: 
  Country: None (occurrence: None)
  Receive Date: 20111019
  Receipt Date: 20111017
  Transmission Date: 20120403
  Serious: Yes (Other)
  Sender: FDA-Public Use
  Company Number: US-PFIZER INC-2011249404

PATIENT
  Sex: Female
  Weight: 90.703 kg

DRUGS (3)
  1. CELEBREX [Suspect]
     Indication: ARTHRITIS
     Dosage: UNK
     Route: 048
  2. AMLODIPINE [Concomitant]
     Indication: HYPERTENSION
     Dosage: 10 MG, 1X/DAY
  3. BENAZEPRIL [Concomitant]
     Dosage: 40 MG, UNK

REACTIONS (2)
  - CARDIAC FIBRILLATION [None]
  - HEART RATE ABNORMAL [None]
